FAERS Safety Report 8645344 (Version 3)
Quarter: 2012Q4

REPORT INFORMATION
  Report Type: 
  Country: US (occurrence: US)
  Receive Date: 20120702
  Receipt Date: 20120919
  Transmission Date: 20130627
  Serious: Yes (Other)
  Sender: FDA-Public Use
  Company Number: US-ASTRAZENECA-2012SE42012

PATIENT
  Age: 53 Year
  Sex: Male
  Weight: 106.6 kg

DRUGS (17)
  1. TOPROL XL [Suspect]
     Route: 048
  2. METOPROLOL SUCCINATE [Suspect]
     Dates: start: 2000, end: 201202
  3. METOPROLOL SUCCINATE [Suspect]
     Dates: start: 201202
  4. UNSPECIFIED INGREDIENT [Suspect]
     Route: 065
  5. JENUVIA [Concomitant]
     Indication: TYPE 2 DIABETES MELLITUS
  6. CLOPIDOGREL [Concomitant]
     Indication: VASCULAR STENOSIS
  7. ZETIA [Concomitant]
     Indication: BLOOD CHOLESTEROL INCREASED
  8. GLIPIZIDE [Concomitant]
     Indication: DIABETES MELLITUS
  9. WELLBUTRIN [Concomitant]
     Indication: ANXIETY
  10. LOVASTATIN [Concomitant]
     Indication: HYPERTENSION
  11. PEPCID [Concomitant]
     Indication: GASTROINTESTINAL DISORDER
  12. GEMFIBROZIL [Concomitant]
  13. ALLOPURINOL [Concomitant]
     Indication: GOUT
  14. HYDROCHLOROTHIAZIDE [Concomitant]
     Indication: HYPERTENSION
  15. TRAZODONE [Concomitant]
     Indication: INSOMNIA
  16. XANAX [Concomitant]
     Indication: INSOMNIA
  17. AMLODIPINE [Concomitant]
     Indication: HYPERTENSION

REACTIONS (10)
  - Myocardial infarction [Unknown]
  - Cerebrovascular accident [Recovering/Resolving]
  - Blood pressure abnormal [Unknown]
  - Adverse event [Unknown]
  - Blood pressure increased [Unknown]
  - Malaise [Unknown]
  - Thinking abnormal [Unknown]
  - Diarrhoea [Unknown]
  - Drug therapy changed [Unknown]
  - Drug dose omission [Unknown]
